FAERS Safety Report 17705123 (Version 2)
Quarter: 2020Q2

REPORT INFORMATION
  Report Type: Spontaneous
  Country: US (occurrence: US)
  Receive Date: 20200424
  Receipt Date: 20200514
  Transmission Date: 20200714
  Serious: No
  Sender: FDA-Public Use
  Company Number: US-PFIZER INC-2020163418

PATIENT
  Age: 60 Year
  Sex: Female

DRUGS (1)
  1. DILANTIN [Suspect]
     Active Substance: PHENYTOIN
     Indication: SEIZURE
     Dosage: 100 MG (1 CAP EVERY MORNING, 2 CAPS EVERY NIGHT)
     Route: 048
     Dates: start: 20200121

REACTIONS (1)
  - White blood cell count decreased [Unknown]
